FAERS Safety Report 8608430-9 (Version None)
Quarter: 2012Q3

REPORT INFORMATION
  Report Type: 
  Country: None (occurrence: None)
  Receive Date: 20120821
  Receipt Date: 20120817
  Transmission Date: 20120928
  Serious: Yes (Other)
  Sender: FDA-Public Use
  Company Number: US-ROCHE-1082737

PATIENT
  Sex: Female
  Weight: 58.112 kg

DRUGS (7)
  1. INCIVEK [Suspect]
     Indication: HEPATITIS C
     Dates: start: 20120512, end: 20120806
  2. RIBAVIRIN [Suspect]
  3. TRAMADOL HCL [Concomitant]
  4. ALEVE [Concomitant]
  5. MEDROL [Concomitant]
  6. RIBAVIRIN [Suspect]
     Indication: HEPATITIS C
     Dates: start: 20120512
  7. PEGASYS [Suspect]
     Indication: HEPATITIS C
     Route: 058
     Dates: start: 20120512

REACTIONS (12)
  - SWELLING FACE [None]
  - ARTHRALGIA [None]
  - INJECTION SITE REACTION [None]
  - BACK PAIN [None]
  - HEADACHE [None]
  - NAUSEA [None]
  - ASTHENIA [None]
  - DECREASED APPETITE [None]
  - VISUAL ACUITY REDUCED [None]
  - DYSGEUSIA [None]
  - RASH GENERALISED [None]
  - VOMITING [None]
